FAERS Safety Report 6928805-3 (Version None)
Quarter: 2010Q3

REPORT INFORMATION
  Report Type: 
  Country: None (occurrence: None)
  Receive Date: 20100809
  Receipt Date: 20100201
  Transmission Date: 20110219
  Serious: No
  Sender: FDA-Public Use
  Company Number: US-001297

PATIENT
  Sex: Male
  Weight: 99.7913 kg

DRUGS (6)
  1. DEGARELIX (240 MG, 80 MG) [Suspect]
     Indication: PRODUCT USED FOR UNKNOWN INDICATION
     Dosage: (240 MG 1X SUBCUTANEOUS), (80 MG 1X/MONTH SUBCUTANEOUS)
     Route: 058
     Dates: start: 20090707, end: 20090707
  2. DEGARELIX (240 MG, 80 MG) [Suspect]
     Indication: PRODUCT USED FOR UNKNOWN INDICATION
     Dosage: (240 MG 1X SUBCUTANEOUS), (80 MG 1X/MONTH SUBCUTANEOUS)
     Route: 058
     Dates: start: 20090814, end: 20090814
  3. AVALIDE [Concomitant]
  4. AMLODIPINE [Concomitant]
  5. STALEVO 100 [Concomitant]
  6. ARICEPT [Concomitant]

REACTIONS (1)
  - INJECTION SITE NODULE [None]
